FAERS Safety Report 21957712 (Version 2)
Quarter: 2023Q1

REPORT INFORMATION
  Report Type: Spontaneous
  Country: CA (occurrence: CA)
  Receive Date: 20230206
  Receipt Date: 20230320
  Transmission Date: 20230418
  Serious: Yes (Other)
  Sender: FDA-Public Use
  Company Number: CA-002147023-NVSC2023CA022531

PATIENT
  Age: 61 Year
  Sex: Female

DRUGS (10)
  1. LETROZOLE [Interacting]
     Active Substance: LETROZOLE
     Indication: Invasive ductal breast carcinoma
     Dosage: UNK
     Route: 065
  2. LETROZOLE [Interacting]
     Active Substance: LETROZOLE
     Indication: Breast cancer recurrent
     Dosage: UNK
     Route: 065
  3. LETROZOLE [Interacting]
     Active Substance: LETROZOLE
     Indication: Breast cancer metastatic
     Dosage: UNK
     Route: 065
  4. LETROZOLE [Interacting]
     Active Substance: LETROZOLE
     Dosage: UNK
     Route: 065
  5. LETROZOLE [Interacting]
     Active Substance: LETROZOLE
     Dosage: UNK
     Route: 065
  6. LETROZOLE [Interacting]
     Active Substance: LETROZOLE
     Dosage: UNK
     Route: 065
  7. ANASTROZOLE [Interacting]
     Active Substance: ANASTROZOLE
     Indication: Invasive ductal breast carcinoma
     Dosage: UNK
     Route: 065
  8. PALBOCICLIB [Interacting]
     Active Substance: PALBOCICLIB
     Indication: Breast cancer recurrent
     Dosage: UNK
     Route: 065
  9. PALBOCICLIB [Interacting]
     Active Substance: PALBOCICLIB
     Indication: Breast cancer metastatic
     Dosage: UNK
     Route: 065
  10. TAMOXIFEN CITRATE [Interacting]
     Active Substance: TAMOXIFEN CITRATE
     Indication: Invasive ductal breast carcinoma
     Dosage: UNK
     Route: 065

REACTIONS (3)
  - Drug-induced liver injury [Unknown]
  - Adverse event [Unknown]
  - Drug interaction [Unknown]
